FAERS Safety Report 13241362 (Version 1)
Quarter: 2017Q1

REPORT INFORMATION
  Report Type: Spontaneous
  Country: US (occurrence: US)
  Receive Date: 20170216
  Receipt Date: 20170216
  Transmission Date: 20170428
  Serious: Yes (Hospitalization)
  Sender: FDA-Public Use
  Company Number: None

PATIENT
  Age: 24 Year
  Sex: Female

DRUGS (1)
  1. AMPHOTERICIN [Suspect]
     Active Substance: AMPHOTERICIN B
     Indication: CYSTIC FIBROSIS
     Route: 055
     Dates: start: 20140711

REACTIONS (1)
  - Lung infection [None]

NARRATIVE: CASE EVENT DATE: 20170215
